FAERS Safety Report 19814858 (Version 1)
Quarter: 2021Q3

REPORT INFORMATION
  Report Type: Spontaneous
  Country: US (occurrence: US)
  Receive Date: 20210907
  Receipt Date: 20210907
  Transmission Date: 20211014
  Serious: No
  Sender: FDA-Public Use
  Company Number: None

PATIENT
  Age: 22 Year
  Sex: Female

DRUGS (1)
  1. ORENCIA [Suspect]
     Active Substance: ABATACEPT
     Route: 058
     Dates: start: 202007

REACTIONS (4)
  - Condition aggravated [None]
  - Gastroenteritis viral [None]
  - Lymphadenopathy [None]
  - Headache [None]

NARRATIVE: CASE EVENT DATE: 20210829
